FAERS Safety Report 12305850 (Version 3)
Quarter: 2016Q2

REPORT INFORMATION
  Report Type: Spontaneous
  Country: CN (occurrence: CN)
  Receive Date: 20160426
  Receipt Date: 20160517
  Transmission Date: 20160815
  Serious: Yes (Hospitalization)
  Sender: FDA-Public Use
  Company Number: CN-ELI_LILLY_AND_COMPANY-CN201604005507

PATIENT
  Age: 78 Year
  Sex: Female
  Weight: 53 kg

DRUGS (7)
  1. URSOLIC ACID [Suspect]
     Active Substance: DIETARY SUPPLEMENT
     Dosage: 1 DF, EACH EVENING
     Route: 065
     Dates: start: 201604
  2. HUMALOG MIX75/25 [Suspect]
     Active Substance: INSULIN LISPRO
     Indication: DIABETES MELLITUS
     Dosage: 10 U, BID
     Route: 058
     Dates: start: 2009
  3. HUMALOG MIX75/25 [Suspect]
     Active Substance: INSULIN LISPRO
     Dosage: 10 U, EACH MORNING
     Route: 058
  4. ACARBOSE. [Concomitant]
     Active Substance: ACARBOSE
     Indication: PRODUCT USED FOR UNKNOWN INDICATION
  5. HUMALOG MIX75/25 [Suspect]
     Active Substance: INSULIN LISPRO
     Dosage: 8 U, EACH EVENING
     Route: 058
  6. URSOLIC ACID [Suspect]
     Active Substance: DIETARY SUPPLEMENT
     Indication: DIABETES MELLITUS
     Dosage: 2 DF, BID
     Route: 065
     Dates: start: 20160130
  7. URSOLIC ACID [Suspect]
     Active Substance: DIETARY SUPPLEMENT
     Dosage: 2 DF, EACH MORNING
     Route: 065
     Dates: start: 201604

REACTIONS (7)
  - Blood pressure increased [Not Recovered/Not Resolved]
  - Myalgia [Unknown]
  - Pruritus [Unknown]
  - Injection site mass [Unknown]
  - Blood glucose increased [Unknown]
  - Hypoglycaemia [Recovered/Resolved]
  - Hypoglycaemia [Recovered/Resolved]

NARRATIVE: CASE EVENT DATE: 2015
